FAERS Safety Report 22138130 (Version 4)
Quarter: 2023Q2

REPORT INFORMATION
  Report Type: Report from Study
  Country: US (occurrence: US)
  Receive Date: 20230325
  Receipt Date: 20230408
  Transmission Date: 20230721
  Serious: No
  Sender: FDA-Public Use
  Company Number: US-002147023-NVSC2023US069613

PATIENT
  Sex: Male
  Weight: 185 kg

DRUGS (6)
  1. METHOTREXATE [Suspect]
     Active Substance: METHOTREXATE
     Indication: Psoriasis
     Dosage: UNK
     Route: 065
  2. ATORVASTATIN [Suspect]
     Active Substance: ATORVASTATIN
     Indication: Psoriasis
     Route: 065
  3. METOPROLOL [Suspect]
     Active Substance: METOPROLOL
     Indication: Psoriasis
     Route: 065
  4. LEVOTHYROXINE [Suspect]
     Active Substance: LEVOTHYROXINE
     Indication: Psoriasis
     Route: 065
  5. FOLIC ACID [Suspect]
     Active Substance: FOLIC ACID
     Indication: Psoriasis
     Route: 065
  6. VITAMIN B1 [Suspect]
     Active Substance: THIAMINE HYDROCHLORIDE
     Indication: Psoriasis
     Route: 065

REACTIONS (9)
  - Skin exfoliation [Unknown]
  - Lymphoedema [Unknown]
  - Hyperkeratosis [Unknown]
  - Skin hyperpigmentation [Unknown]
  - Hyperplasia [Unknown]
  - Papilloma [Unknown]
  - Varicose vein [Unknown]
  - Drug ineffective [Unknown]
  - Off label use [Unknown]
